FAERS Safety Report 14895816 (Version 1)
Quarter: 2018Q2

REPORT INFORMATION
  Report Type: Spontaneous
  Country: US (occurrence: US)
  Receive Date: 20180427
  Receipt Date: 20180427
  Transmission Date: 20180711
  Serious: Yes (Disabling)
  Sender: FDA-Public Use
  Company Number: None

PATIENT
  Age: 48 Year
  Sex: Female
  Weight: 62.1 kg

DRUGS (1)
  1. QVAR [Suspect]
     Active Substance: BECLOMETHASONE DIPROPIONATE
     Indication: ASTHMA
     Dosage: ?          QUANTITY:2 PUFF(S);?
     Route: 055
     Dates: start: 20180113, end: 20180416

REACTIONS (8)
  - Fatigue [None]
  - Anxiety [None]
  - Palpitations [None]
  - Malaise [None]
  - Asthenia [None]
  - Asthenopia [None]
  - Oropharyngeal pain [None]
  - Asthma [None]

NARRATIVE: CASE EVENT DATE: 20180114
